FAERS Safety Report 11448902 (Version 5)
Quarter: 2016Q2

REPORT INFORMATION
  Report Type: Spontaneous
  Country: US (occurrence: US)
  Receive Date: 20150902
  Receipt Date: 20160518
  Transmission Date: 20160815
  Serious: Yes (Other)
  Sender: FDA-Public Use
  Company Number: US-MDT-ADR-2015-01682

PATIENT
  Age: 46 Year
  Sex: Female

DRUGS (28)
  1. BENADRYL [Suspect]
     Active Substance: DIPHENHYDRAMINE HYDROCHLORIDE
     Route: 065
  2. BUPIVACAINE. [Suspect]
     Active Substance: BUPIVACAINE
     Dosage: 2.3975 MG/DAY
     Route: 037
     Dates: start: 2005
  3. COMPAZINE [Suspect]
     Active Substance: PROCHLORPERAZINE MALEATE
     Route: 065
  4. GABAPENTIN. [Suspect]
     Active Substance: GABAPENTIN
     Route: 065
  5. SYNTHROID [Suspect]
     Active Substance: LEVOTHYROXINE SODIUM
     Route: 065
  6. LISINOPRIL. [Suspect]
     Active Substance: LISINOPRIL
     Route: 065
  7. ZOLOFT [Suspect]
     Active Substance: SERTRALINE HYDROCHLORIDE
     Route: 065
  8. FIORICET [Suspect]
     Active Substance: ACETAMINOPHEN\BUTALBITAL\CAFFEINE
     Route: 065
  9. LANTUS [Suspect]
     Active Substance: INSULIN GLARGINE
     Route: 065
  10. LAMICTAL [Suspect]
     Active Substance: LAMOTRIGINE
     Route: 065
  11. METOLAZOLE [Suspect]
     Active Substance: METOLAZONE
     Route: 065
  12. MSIR 15 [Suspect]
     Active Substance: MORPHINE SULFATE
     Route: 065
  13. CLONIDINE. [Suspect]
     Active Substance: CLONIDINE
     Dosage: 101.23 MCG/DAY
     Route: 037
     Dates: start: 2005
  14. CELEXA [Suspect]
     Active Substance: CITALOPRAM HYDROBROMIDE
     Route: 065
  15. GABITRIL [Suspect]
     Active Substance: TIAGABINE HYDROCHLORIDE
     Route: 065
  16. TEMAZEPAM. [Suspect]
     Active Substance: TEMAZEPAM
     Route: 065
  17. CLONIDINE. [Suspect]
     Active Substance: CLONIDINE
     Route: 065
  18. LANSOPRAZOLE. [Suspect]
     Active Substance: LANSOPRAZOLE
     Route: 065
  19. COMPOUNDED BACLOFEN INTRATHECAL [Suspect]
     Active Substance: BACLOFEN
     Dosage: 74.59 MCG/DAY
     Route: 037
     Dates: start: 2005
  20. AMLODIPINE [Suspect]
     Active Substance: AMLODIPINE BESYLATE
     Route: 065
  21. LASIX [Suspect]
     Active Substance: FUROSEMIDE
     Route: 065
  22. BACLOFEN ORAL [Suspect]
     Active Substance: BACLOFEN
     Route: 048
  23. CARAFATE [Suspect]
     Active Substance: SUCRALFATE
     Route: 065
  24. PHENERGAN [Suspect]
     Active Substance: PROMETHAZINE HYDROCHLORIDE
     Route: 065
  25. MORPHINE [Suspect]
     Active Substance: MORPHINE
     Dosage: 7.992 MG/DAY
     Route: 037
     Dates: start: 2005
  26. ALBUTEROL. [Suspect]
     Active Substance: ALBUTEROL
     Route: 065
  27. XANAX [Suspect]
     Active Substance: ALPRAZOLAM
     Route: 065
  28. CLONAZEPAM. [Suspect]
     Active Substance: CLONAZEPAM
     Route: 065

REACTIONS (6)
  - Device malfunction [None]
  - Drug effect decreased [None]
  - Depressed level of consciousness [Unknown]
  - Pain [Unknown]
  - Device kink [None]
  - Lethargy [Unknown]

NARRATIVE: CASE EVENT DATE: 20150201
